FAERS Safety Report 15107920 (Version 2)
Quarter: 2018Q3

REPORT INFORMATION
  Report Type: Spontaneous
  Country: US (occurrence: US)
  Receive Date: 20180704
  Receipt Date: 20180720
  Transmission Date: 20181010
  Serious: No
  Sender: FDA-Public Use
  Company Number: US-009507513-1806USA010408

PATIENT
  Age: 20 Year
  Sex: Female
  Weight: 50.79 kg

DRUGS (1)
  1. NEXPLANON [Suspect]
     Active Substance: ETONOGESTREL
     Indication: CONTRACEPTION
     Dosage: 1 IMPLANT, UNK
     Dates: start: 20180622, end: 20180622

REACTIONS (6)
  - Product quality issue [Unknown]
  - No adverse event [Unknown]
  - Device deployment issue [Recovered/Resolved]
  - Incorrect route of drug administration [Unknown]
  - Drug administration error [Unknown]
  - Complication of device insertion [Recovered/Resolved]

NARRATIVE: CASE EVENT DATE: 20180622
